FAERS Safety Report 7099832-3 (Version None)
Quarter: 2010Q4

REPORT INFORMATION
  Report Type: 
  Country: None (occurrence: None)
  Receive Date: 20101112
  Receipt Date: 20101104
  Transmission Date: 20110411
  Serious: Yes (Other)
  Sender: FDA-Public Use
  Company Number: US-US-EMD SERONO, INC.-7026272

PATIENT
  Sex: Male

DRUGS (3)
  1. REBIF [Suspect]
     Indication: PRODUCT USED FOR UNKNOWN INDICATION
     Route: 058
     Dates: start: 20081126
  2. VICODIN [Concomitant]
     Indication: PAIN
  3. ARTHROTEC [Concomitant]
     Indication: ARTHRALGIA

REACTIONS (7)
  - ARTHROSCOPY [None]
  - INJECTION SITE ERYTHEMA [None]
  - LIVER FUNCTION TEST ABNORMAL [None]
  - PAIN [None]
  - PERIPHERAL COLDNESS [None]
  - RASH [None]
  - UNEVALUABLE EVENT [None]
